FAERS Safety Report 15355485 (Version 3)
Quarter: 2018Q4

REPORT INFORMATION
  Report Type: Spontaneous
  Country: US (occurrence: US)
  Receive Date: 20180906
  Receipt Date: 20181231
  Transmission Date: 20190204
  Serious: Yes (Other)
  Sender: FDA-Public Use
  Company Number: US-BAYER-2018-167122

PATIENT
  Age: 9 Decade
  Sex: Male
  Weight: 80.74 kg

DRUGS (6)
  1. ACETYLSALICYLIC ACID({=100 MG) [Suspect]
     Active Substance: ASPIRIN
     Indication: TRANSIENT ISCHAEMIC ATTACK
     Dosage: 81 MG, UNK
     Route: 065
     Dates: start: 2009
  2. XARELTO [Suspect]
     Active Substance: RIVAROXABAN
     Indication: PULMONARY THROMBOSIS
     Dosage: 20 MG, QD
     Route: 048
     Dates: start: 201401
  3. CETIRIZINE HYDROCHLORIDE. [Concomitant]
     Active Substance: CETIRIZINE HYDROCHLORIDE
     Indication: RASH
     Dosage: UNK
     Route: 048
     Dates: start: 201807
  4. ALLEGRA [Concomitant]
     Active Substance: FEXOFENADINE HYDROCHLORIDE
     Dosage: UNK
     Route: 065
  5. XARELTO [Suspect]
     Active Substance: RIVAROXABAN
     Indication: PULMONARY THROMBOSIS
     Dosage: 15 MG, BID
     Route: 048
     Dates: start: 2014, end: 2014
  6. PRAVASTATIN. [Concomitant]
     Active Substance: PRAVASTATIN
     Indication: TRANSIENT ISCHAEMIC ATTACK
     Dosage: 10 MG, UNK
     Route: 065
     Dates: start: 2009

REACTIONS (10)
  - Rash generalised [Recovered/Resolved]
  - Lung disorder [Recovered/Resolved]
  - Microscopic polyangiitis [Not Recovered/Not Resolved]
  - Skin haemorrhage [Recovered/Resolved]
  - Anaemia [Not Recovered/Not Resolved]
  - Body height decreased [Not Recovered/Not Resolved]
  - Oropharyngeal pain [Unknown]
  - Blood urine present [Not Recovered/Not Resolved]
  - Weight decreased [Not Recovered/Not Resolved]
  - Product lot number issue [Unknown]

NARRATIVE: CASE EVENT DATE: 2015
